FAERS Safety Report 11002632 (Version 2)
Quarter: 2015Q2

REPORT INFORMATION
  Report Type: Spontaneous
  Country: US (occurrence: US)
  Receive Date: 20150408
  Receipt Date: 20150519
  Transmission Date: 20150821
  Serious: No
  Sender: FDA-Public Use
  Company Number: US-009507513-1504USA003814

PATIENT

DRUGS (3)
  1. EMEND [Suspect]
     Active Substance: APREPITANT
     Dosage: UNK
     Route: 042
  2. EMEND [Suspect]
     Active Substance: APREPITANT
     Dosage: UNK
     Route: 042
  3. EMEND [Suspect]
     Active Substance: APREPITANT
     Dosage: UNK
     Route: 042

REACTIONS (1)
  - Anaphylactic reaction [Unknown]
